FAERS Safety Report 7526951-7 (Version None)
Quarter: 2011Q2

REPORT INFORMATION
  Report Type: 
  Country: None (occurrence: None)
  Receive Date: 20110606
  Receipt Date: 20040408
  Transmission Date: 20111010
  Serious: Yes (Life-Threatening, Hospitalization)
  Sender: FDA-Public Use
  Company Number: PHHO2004CA03359

PATIENT
  Sex: Male

DRUGS (7)
  1. POTASSIUM CHLORIDE [Concomitant]
     Dosage: 20 MG,
  2. RISPERIDONE [Concomitant]
     Dosage: 1.5 MG,
  3. CLOZAPINE [Suspect]
     Indication: SCHIZOPHRENIA
     Route: 048
     Dates: start: 20010723, end: 20040229
  4. LORAZEPAM [Concomitant]
     Dosage: 1 MG,
  5. SERTRALINE HYDROCHLORIDE [Concomitant]
     Dosage: 75 MG,
  6. CLOZAPINE [Suspect]
     Dosage: 50 MG, BID
     Route: 048
  7. CLOZAPINE [Suspect]
     Dosage: TITRATED UP 200MG AM 225MG PM
     Dates: start: 20040305

REACTIONS (7)
  - ILEUS PARALYTIC [None]
  - APPENDICITIS PERFORATED [None]
  - SEPSIS [None]
  - PAIN IN EXTREMITY [None]
  - SEPTIC SHOCK [None]
  - PNEUMONIA [None]
  - DYSPNOEA [None]
